FAERS Safety Report 10048492 (Version 1)
Quarter: 2014Q1

REPORT INFORMATION
  Report Type: Spontaneous
  Country: FR (occurrence: FR)
  Receive Date: 20140331
  Receipt Date: 20140331
  Transmission Date: 20141002
  Serious: Yes (Other)
  Sender: FDA-Public Use
  Company Number: PHHY2014FR037596

PATIENT
  Age: 76 Year
  Sex: Female

DRUGS (9)
  1. FEMARA [Suspect]
     Indication: BREAST CANCER
     Dosage: 2.5 MG, QD
     Route: 048
     Dates: start: 20120801, end: 20140210
  2. ACTONEL [Suspect]
     Indication: OSTEOPOROSIS
     Dosage: 1 DF, FOR CONSECUTIVE DAYS PER MONTH
     Route: 048
     Dates: start: 201211
  3. FLECTOR [Concomitant]
     Dosage: UNK UKN, UNK
  4. DAFALGAN [Concomitant]
     Dosage: UNK UKN, UNK
  5. UVEDOSE [Concomitant]
     Dosage: UNK UKN, UNK
  6. INEXIUM [Concomitant]
     Dosage: 20 MG, UNK
  7. ZALDIAR [Concomitant]
     Dosage: UNK UKN, UNK
  8. CARTREX [Concomitant]
     Dosage: UNK UKN, UNK
  9. RADIOTHERAPY [Concomitant]
     Indication: BREAST CANCER
     Dosage: UNK UKN, UNK
     Dates: start: 20120801

REACTIONS (1)
  - Organising pneumonia [Not Recovered/Not Resolved]
